FAERS Safety Report 6599150-3 (Version None)
Quarter: 2010Q1

REPORT INFORMATION
  Report Type: 
  Country: None (occurrence: None)
  Receive Date: 20100224
  Receipt Date: 20100217
  Transmission Date: 20100710
  Serious: Yes (Other)
  Sender: FDA-Public Use
  Company Number: US-BRISTOL-MYERS SQUIBB COMPANY-14968986

PATIENT
  Age: 75 Year
  Sex: Male

DRUGS (3)
  1. METFORMIN HCL [Suspect]
     Dates: end: 20091001
  2. LANTUS [Suspect]
     Indication: TYPE 2 DIABETES MELLITUS
     Dosage: 1 DF = 20 UNITS
     Dates: start: 20091203
  3. GLIPIZIDE [Suspect]

REACTIONS (1)
  - RENAL DISORDER [None]
